FAERS Safety Report 9413568 (Version 4)
Quarter: 2014Q1

REPORT INFORMATION
  Report Type: Spontaneous
  Country: JP (occurrence: JP)
  Receive Date: 20130627
  Receipt Date: 20140306
  Transmission Date: 20141002
  Serious: Yes (Death, Hospitalization, Other)
  Sender: FDA-Public Use
  Company Number: SYM-2013-04045

PATIENT
  Age: 61 Year
  Sex: Male
  Weight: 37 kg

DRUGS (7)
  1. CHOREAZINE [Suspect]
     Indication: HUNTINGTON^S DISEASE
     Dosage: 1 IN 1 D
     Route: 048
     Dates: start: 20130423, end: 20130617
  2. YOKUKANSAN (YOKUKANSAN) (ANGELICA ACUTILOBA ROOT, PORIA COCOS SCLEROTIUM, ATRACTYLODES LANCEA RHIZOME, BUPLEURUM FALCATUM ROOT, CNIDIUM OFFICINALE RHIZOME, UNCARIA SPP. HOOK, GLYCYRRHIZA SPP.ROOT) [Concomitant]
  3. MAGNESIUM OXIDE [Concomitant]
  4. CLARITH (CLARITHROMYCIN) (DRY SYRUP)(CLARITHROMYCIN) [Concomitant]
  5. CEFTRIAXONE SODIUM HYDRATE (CEFTRIAXONE SODIUM) (CEFTRIAXONE SODIUM) [Concomitant]
  6. TIAPRIDE HYDROCHLORIDE (TIAPRIDE HYDROCHLORIDE) (TIAPRIDE HYDROCHLORIDE) [Concomitant]
  7. RIVOTRIL (CLONAZEPAM) (CLONAZEPAM) [Concomitant]

REACTIONS (4)
  - Pneumonia aspiration [None]
  - Dysphagia [None]
  - Cachexia [None]
  - Decubitus ulcer [None]
